FAERS Safety Report 4608736-4 (Version None)
Quarter: 2005Q1

REPORT INFORMATION
  Report Type: 
  Country: None (occurrence: None)
  Receive Date: 20050309
  Receipt Date: 20050222
  Transmission Date: 20050727
  Serious: Yes (Death)
  Sender: FDA-Public Use
  Company Number: GBS050216652

PATIENT
  Age: 27 Year
  Sex: Female

DRUGS (5)
  1. ZYPREXA [Suspect]
  2. RISPERIDONE [Concomitant]
  3. CLOPIXOL (ZUCLOPENTHIXOL) [Concomitant]
  4. CANNABIS [Concomitant]
  5. DEXTROAMPHETAMINE (DEXAMFETAMINE) [Concomitant]

REACTIONS (2)
  - COMPLETED SUICIDE [None]
  - INTENTIONAL MISUSE [None]
